FAERS Safety Report 16540176 (Version 1)
Quarter: 2019Q3

REPORT INFORMATION
  Report Type: Spontaneous
  Country: DE (occurrence: DE)
  Receive Date: 20190708
  Receipt Date: 20190708
  Transmission Date: 20191004
  Serious: Yes (Hospitalization)
  Sender: FDA-Public Use
  Company Number: DE-SA-2019SA179070

PATIENT
  Age: 74 Year
  Sex: Male
  Weight: 148 kg

DRUGS (8)
  1. CARMEN [LERCANIDIPINE HYDROCHLORIDE] [Concomitant]
     Dosage: 20 MG (20 MG 0-0-0.5-0)
     Route: 048
  2. TORASEMIDE [Suspect]
     Active Substance: TORSEMIDE
     Indication: PRODUCT USED FOR UNKNOWN INDICATION
     Dosage: 10 MG 1-0-0-0
     Route: 048
  3. BICANORM [Concomitant]
     Active Substance: SODIUM BICARBONATE
     Dosage: 1 G 1-1-1-0
     Route: 048
  4. IRBESARTAN. [Suspect]
     Active Substance: IRBESARTAN
     Indication: PRODUCT USED FOR UNKNOWN INDICATION
     Dosage: 300 MG 0.5-0-0-0
     Route: 048
  5. TILIDINE [Concomitant]
     Active Substance: TILIDINE
     Dosage: 50|4 MG, 1-0-1-0
     Route: 048
  6. SIMVASTATIN. [Concomitant]
     Active Substance: SIMVASTATIN
     Dosage: 20 MG 0-0-1-0
     Route: 048
  7. ALLOPURINOL. [Concomitant]
     Active Substance: ALLOPURINOL
     Dosage: 30 MG  0-0-0.5-0
     Route: 048
  8. PANTOPRAZOLE [Concomitant]
     Active Substance: PANTOPRAZOLE
     Dosage: 20 MG 1-0-0-0
     Route: 048

REACTIONS (2)
  - Electrolyte imbalance [Unknown]
  - Cough [Unknown]
